FAERS Safety Report 8618495 (Version 2)
Quarter: 2014Q1

REPORT INFORMATION
  Report Type: Spontaneous
  Country: US (occurrence: US)
  Receive Date: 20120618
  Receipt Date: 20140130
  Transmission Date: 20141002
  Serious: Yes (Hospitalization)
  Sender: FDA-Public Use
  Company Number: US-ASTRAZENECA-2012SE36462

PATIENT
  Age: 59 Year
  Sex: Male
  Weight: 102.1 kg

DRUGS (5)
  1. NEXIUM [Suspect]
     Indication: GASTROOESOPHAGEAL REFLUX DISEASE
     Dosage: TWICE A DAY, THEN ONCE A DAY EVENTUALLY
     Route: 048
  2. NEXIUM [Suspect]
     Indication: GASTROOESOPHAGEAL REFLUX DISEASE
     Route: 048
     Dates: start: 2008, end: 2012
  3. AMIODARONE [Concomitant]
     Dosage: 3-4 MONTHS
  4. HIGH BLOOD PRESSURE MEDICINE [Concomitant]
  5. VITAMIN D3 [Concomitant]
     Indication: FULL BLOOD COUNT DECREASED

REACTIONS (6)
  - Nephrolithiasis [Unknown]
  - Osteoporosis [Unknown]
  - Foot fracture [Unknown]
  - Gastric disorder [Unknown]
  - Arthritis [Unknown]
  - Cardiac disorder [Unknown]
